FAERS Safety Report 18751409 (Version 2)
Quarter: 2021Q2

REPORT INFORMATION
  Report Type: Spontaneous
  Country: US (occurrence: US)
  Receive Date: 20210118
  Receipt Date: 20210505
  Transmission Date: 20210717
  Serious: No
  Sender: FDA-Public Use
  Company Number: US-GW PHARMA-202101USGW00110

PATIENT

DRUGS (2)
  1. EPIDIOLEX [Suspect]
     Active Substance: CANNABIDIOL
     Dosage: 410 MILLIGRAM, BID
     Route: 048
     Dates: start: 202010
  2. EPIDIOLEX [Suspect]
     Active Substance: CANNABIDIOL
     Indication: LENNOX-GASTAUT SYNDROME
     Dosage: 480 MILLIGRAM, BID
     Route: 048
     Dates: start: 20190928, end: 2020

REACTIONS (4)
  - Alopecia [Unknown]
  - Weight decreased [Recovered/Resolved]
  - Incorrect dose administered [Unknown]
  - Diarrhoea [Unknown]

NARRATIVE: CASE EVENT DATE: 202009
